FAERS Safety Report 9839294 (Version 2)
Quarter: 2014Q1

REPORT INFORMATION
  Report Type: Report from Study
  Country: US (occurrence: US)
  Receive Date: 20140123
  Receipt Date: 20140219
  Transmission Date: 20141002
  Serious: Yes (Death)
  Sender: FDA-Public Use
  Company Number: PHEH2014US001557

PATIENT
  Sex: Female
  Weight: 52.5 kg

DRUGS (7)
  1. AFINITOR [Suspect]
     Indication: BLADDER CANCER
     Dosage: 10 MG, QD
     Route: 048
     Dates: start: 20131205, end: 20131223
  2. AFINITOR [Suspect]
     Indication: OFF LABEL USE
  3. DILAUDID [Concomitant]
     Indication: PAIN
     Route: 048
  4. FENTANYL [Concomitant]
     Indication: PAIN
     Dosage: 12 UG/HR, UNK
     Route: 061
  5. ATIVAN [Concomitant]
     Indication: NAUSEA
     Route: 048
  6. MEGACE [Concomitant]
     Dosage: 800 MG, UNK
     Route: 048
  7. NORCO [Concomitant]
     Indication: PAIN
     Route: 048

REACTIONS (1)
  - Malignant neoplasm progression [Fatal]
